FAERS Safety Report 14115895 (Version 1)
Quarter: 2017Q4

REPORT INFORMATION
  Report Type: Spontaneous
  Country: BR (occurrence: BR)
  Receive Date: 20171023
  Receipt Date: 20171023
  Transmission Date: 20180321
  Serious: Yes (Other)
  Sender: FDA-Public Use
  Company Number: BR-GALDERMA-BR17009492

PATIENT
  Sex: Female

DRUGS (1)
  1. CLOB-X SHAMPOO [Suspect]
     Active Substance: CLOBETASOL PROPIONATE
     Indication: PRODUCT USED FOR UNKNOWN INDICATION
     Dosage: USED TWICE
     Route: 061

REACTIONS (12)
  - Musculoskeletal discomfort [Unknown]
  - Vulvovaginal discomfort [Unknown]
  - Blindness [Unknown]
  - Skin discolouration [Not Recovered/Not Resolved]
  - Eye swelling [Not Recovered/Not Resolved]
  - Discomfort [Not Recovered/Not Resolved]
  - Mouth swelling [Unknown]
  - Headache [Unknown]
  - Hypersensitivity [Unknown]
  - Dyspnoea [Unknown]
  - Nasal congestion [Unknown]
  - Rash [Unknown]
